FAERS Safety Report 16414334 (Version 1)
Quarter: 2019Q2

REPORT INFORMATION
  Report Type: Spontaneous
  Country: US (occurrence: US)
  Receive Date: 20190503
  Receipt Date: 20190503
  Transmission Date: 20190711
  Serious: No
  Sender: FDA-Public Use
  Company Number: None

PATIENT
  Age: 1 Year
  Sex: Male

DRUGS (1)
  1. TAMIFLU [Suspect]
     Active Substance: OSELTAMIVIR PHOSPHATE

REACTIONS (10)
  - Crying [None]
  - Hallucination [None]
  - Hyperhidrosis [None]
  - Sleep terror [None]
  - Illusion [None]
  - Hypophagia [None]
  - Irritability [None]
  - Confusional state [None]
  - Miliaria [None]
  - Erythema [None]

NARRATIVE: CASE EVENT DATE: 20190221
